FAERS Safety Report 5102369-1 (Version None)
Quarter: 2006Q3

REPORT INFORMATION
  Report Type: 
  Country: None (occurrence: None)
  Receive Date: 20060912
  Receipt Date: 20060718
  Transmission Date: 20061208
  Serious: No
  Sender: FDA-Public Use
  Company Number: US-GLAXOSMITHKLINE-A0613405A

PATIENT
  Sex: Female

DRUGS (7)
  1. FLOVENT [Suspect]
     Indication: EMPHYSEMA
     Dosage: 2PUFF TWICE PER DAY
     Route: 055
     Dates: start: 20050101
  2. ANTIFUNGAL [Suspect]
     Route: 048
  3. ANTIFUNGAL [Suspect]
     Route: 048
  4. FLOVENT [Concomitant]
     Route: 055
     Dates: start: 20010101, end: 20050101
  5. SPIRIVA [Concomitant]
  6. THYROID TAB [Concomitant]
  7. VASERETIC [Concomitant]

REACTIONS (9)
  - ABDOMINAL DISCOMFORT [None]
  - BURNING SENSATION [None]
  - CANDIDIASIS [None]
  - FEELING ABNORMAL [None]
  - FLUSHING [None]
  - INSOMNIA [None]
  - MOUTH PLAQUE [None]
  - PAIN [None]
  - RETCHING [None]
